FAERS Safety Report 11290448 (Version 1)
Quarter: 2015Q3

REPORT INFORMATION
  Report Type: Spontaneous
  Country: US (occurrence: US)
  Receive Date: 20150722
  Receipt Date: 20150722
  Transmission Date: 20151125
  Serious: No
  Sender: FDA-Public Use
  Company Number: US-AMGEN-USASP2015071688

PATIENT
  Age: 40 Year
  Sex: Female

DRUGS (1)
  1. ENBREL [Suspect]
     Active Substance: ETANERCEPT
     Indication: PRODUCT USED FOR UNKNOWN INDICATION
     Dosage: 50 MG, QWK
     Route: 065
     Dates: start: 20150713

REACTIONS (5)
  - Malaise [Unknown]
  - Fatigue [Unknown]
  - Arthropathy [Unknown]
  - Influenza like illness [Unknown]
  - Nasal congestion [Unknown]

NARRATIVE: CASE EVENT DATE: 201507
